FAERS Safety Report 7414279-5 (Version None)
Quarter: 2011Q1

REPORT INFORMATION
  Report Type: 
  Country: None (occurrence: None)
  Receive Date: 20110302
  Receipt Date: 20100929
  Transmission Date: 20110831
  Serious: Yes (Other)
  Sender: FDA-Public Use
  Company Number: 309266

PATIENT
  Age: 61 Year
  Sex: Female
  Weight: 90.7 kg

DRUGS (4)
  1. CELESTONE [Suspect]
     Indication: SURGERY
     Dosage: 1 CC, SINGLE, INTRA-ARTICULAR
     Route: 014
     Dates: start: 20100526, end: 20100526
  2. CELESTONE [Suspect]
     Indication: SYNOVITIS
     Dosage: 1 CC, SINGLE, INTRA-ARTICULAR
     Route: 014
     Dates: start: 20100526, end: 20100526
  3. NOVOLIN N [Suspect]
     Indication: TYPE 2 DIABETES MELLITUS
     Dosage: SUBCUTANEOUS
     Route: 058
  4. NOVOLOG [Suspect]
     Indication: TYPE 2 DIABETES MELLITUS
     Dosage: SUBCUTANEOUS
     Route: 058

REACTIONS (1)
  - BLOOD GLUCOSE INCREASED [None]
